FAERS Safety Report 21451054 (Version 1)
Quarter: 2022Q4

REPORT INFORMATION
  Report Type: Spontaneous
  Country: HR (occurrence: HR)
  Receive Date: 20221013
  Receipt Date: 20221013
  Transmission Date: 20230112
  Serious: Yes (Other)
  Sender: FDA-Public Use
  Company Number: None

PATIENT
  Age: 51 Year
  Sex: Male
  Weight: 100 kg

DRUGS (3)
  1. LYRICA [Suspect]
     Active Substance: PREGABALIN
     Indication: Product used for unknown indication
     Dosage: 2 DOSAGE FORM, QD
     Route: 048
     Dates: start: 20220807, end: 20220807
  2. SEROQUEL [Suspect]
     Active Substance: QUETIAPINE FUMARATE
     Indication: Product used for unknown indication
     Dosage: 20 DOSAGE FORM, QD
     Route: 048
     Dates: start: 20220807, end: 20220807
  3. SUBUTEX [Suspect]
     Active Substance: BUPRENORPHINE HYDROCHLORIDE
     Indication: Product used for unknown indication
     Dosage: 20 DOSAGE FORM, QD
     Route: 048
     Dates: start: 20220807, end: 20220807

REACTIONS (6)
  - Chest pain [Unknown]
  - Tachycardia [Unknown]
  - Drug abuse [Unknown]
  - Overdose [Unknown]
  - Miosis [Unknown]
  - Agitation [Unknown]

NARRATIVE: CASE EVENT DATE: 20220807
